FAERS Safety Report 12671286 (Version 1)
Quarter: 2016Q3

REPORT INFORMATION
  Report Type: Spontaneous
  Country: US (occurrence: US)
  Receive Date: 20160822
  Receipt Date: 20160822
  Transmission Date: 20161109
  Serious: No
  Sender: FDA-Public Use
  Company Number: US-TEVA-642215USA

PATIENT
  Age: 76 Year
  Sex: Female

DRUGS (1)
  1. FEXOFENADINE [Suspect]
     Active Substance: FEXOFENADINE\FEXOFENADINE HYDROCHLORIDE
     Indication: PRODUCT USED FOR UNKNOWN INDICATION
     Dosage: 180 MG 571
     Route: 048
     Dates: start: 201603

REACTIONS (2)
  - Drug administered to patient of inappropriate age [Unknown]
  - Rash [Unknown]

NARRATIVE: CASE EVENT DATE: 201603
